FAERS Safety Report 6830545-6 (Version None)
Quarter: 2010Q3

REPORT INFORMATION
  Report Type: 
  Country: None (occurrence: None)
  Receive Date: 20100712
  Receipt Date: 20100629
  Transmission Date: 20110219
  Serious: Yes (Hospitalization, Disabling, Other)
  Sender: FDA-Public Use
  Company Number: JP-JNJFOC-20100509700

PATIENT
  Sex: Male
  Weight: 54 kg

DRUGS (15)
  1. REMICADE [Suspect]
     Indication: RHEUMATOID ARTHRITIS
     Route: 042
  2. REMICADE [Suspect]
     Dosage: INFUSIONS 2 AND 3 ON UNSPECIFIED DATES
     Route: 042
  3. REMICADE [Suspect]
     Route: 042
  4. REMICADE [Suspect]
     Dosage: DOSE ALSO REPORTED AS 300 MG
     Route: 042
  5. CELECOX [Suspect]
     Indication: RHEUMATOID ARTHRITIS
     Route: 048
  6. RINDERON [Suspect]
     Indication: RHEUMATOID ARTHRITIS
     Route: 048
  7. PREDONINE [Suspect]
     Indication: RHEUMATOID ARTHRITIS
     Route: 042
  8. ALL OTHER THERAPEUTIC PRODUCTS [Suspect]
     Indication: UPPER RESPIRATORY TRACT INFLAMMATION
     Route: 048
  9. NABOAL [Suspect]
     Indication: RHEUMATOID ARTHRITIS
     Route: 048
  10. TAKEPRON [Concomitant]
     Indication: GASTROOESOPHAGEAL REFLUX DISEASE
     Route: 048
  11. RHEUMATREX [Concomitant]
     Indication: RHEUMATOID ARTHRITIS
     Route: 048
  12. FOLIAMIN [Concomitant]
     Indication: RHEUMATOID ARTHRITIS
     Route: 048
  13. ONEALFA [Concomitant]
     Indication: OSTEOPOROSIS
     Dosage: DOSE REPORTED AS 0.5 RG
     Route: 048
  14. BENET [Concomitant]
     Indication: OSTEOPOROSIS
     Route: 048
  15. PREMEDICATION [Concomitant]
     Indication: PREMEDICATION

REACTIONS (2)
  - MYOCARDIAL INFARCTION [None]
  - UPPER RESPIRATORY TRACT INFLAMMATION [None]
